FAERS Safety Report 23975715 (Version 1)
Quarter: 2024Q2

REPORT INFORMATION
  Report Type: Spontaneous
  Country: US (occurrence: US)
  Receive Date: 20240614
  Receipt Date: 20240614
  Transmission Date: 20240716
  Serious: No
  Sender: FDA-Public Use
  Company Number: US-ALVOGEN-2024094469

PATIENT

DRUGS (1)
  1. LISDEXAMFETAMINE [Suspect]
     Active Substance: LISDEXAMFETAMINE
     Indication: Product used for unknown indication
     Dosage: ALV 564, THE ORANGE AND WHITE CAPSULE
     Route: 048

REACTIONS (3)
  - Product physical issue [Unknown]
  - Product size issue [Unknown]
  - Incorrect dose administered [Unknown]
